FAERS Safety Report 5277505-7 (Version None)
Quarter: 2007Q1

REPORT INFORMATION
  Report Type: 
  Country: None (occurrence: None)
  Receive Date: 20070327
  Receipt Date: 20070314
  Transmission Date: 20070707
  Serious: Yes (Other)
  Sender: FDA-Public Use
  Company Number: GB-JNJFOC-20070303751

PATIENT
  Sex: Female

DRUGS (4)
  1. IBUPROFEN [Suspect]
     Indication: DRUG USE FOR UNKNOWN INDICATION
     Route: 048
  2. PAROXETINE HYDROCHLORIDE [Suspect]
     Indication: DRUG USE FOR UNKNOWN INDICATION
     Dosage: ONE QUARTER (UNSPECIFIED STRENGTH) TABLET, RESTARTED AT A DOSE OF 30 MG DAILY, DISCONTINUED IN 2001
  3. SERTRALINE [Concomitant]
     Indication: DRUG USE FOR UNKNOWN INDICATION
  4. SULPIRIDE [Concomitant]
     Indication: DRUG USE FOR UNKNOWN INDICATION

REACTIONS (5)
  - DRUG WITHDRAWAL SYNDROME [None]
  - HYPERHIDROSIS [None]
  - OVERDOSE [None]
  - PRURITUS [None]
  - SUICIDAL IDEATION [None]
